FAERS Safety Report 21883290 (Version 1)
Quarter: 2023Q1

REPORT INFORMATION
  Report Type: Spontaneous
  Country: US (occurrence: US)
  Receive Date: 20230119
  Receipt Date: 20230119
  Transmission Date: 20230418
  Serious: Yes (Other)
  Sender: FDA-Public Use
  Company Number: US-002147023-NVSC2023US009912

PATIENT
  Sex: Female
  Weight: 113.38 kg

DRUGS (4)
  1. AMITRIPTYLINE HYDROCHLORIDE [Suspect]
     Active Substance: AMITRIPTYLINE HYDROCHLORIDE
     Indication: Migraine
     Dosage: 2 DOSAGE FORM, AT BEDTIME
     Route: 048
  2. AMITRIPTYLINE HYDROCHLORIDE [Suspect]
     Active Substance: AMITRIPTYLINE HYDROCHLORIDE
     Indication: Migraine
     Dosage: 2 DOSAGE FORM, AT BEDTIME
     Route: 048
     Dates: start: 20230102
  3. AMITRIPTYLINE HYDROCHLORIDE [Suspect]
     Active Substance: AMITRIPTYLINE HYDROCHLORIDE
     Dosage: 2 DOSAGE FORM, AT BEDTIME
     Route: 048
     Dates: start: 20230106
  4. AMITRIPTYLINE HYDROCHLORIDE [Suspect]
     Active Substance: AMITRIPTYLINE HYDROCHLORIDE
     Dosage: 2 DOSAGE FORM, AT BEDTIME
     Route: 048
     Dates: start: 20230111

REACTIONS (6)
  - Dystonia [Unknown]
  - Muscle twitching [Unknown]
  - Nightmare [Unknown]
  - Insomnia [Unknown]
  - Product availability issue [Unknown]
  - Product substitution issue [Unknown]
